FAERS Safety Report 7166382-5 (Version None)
Quarter: 2010Q4

REPORT INFORMATION
  Report Type: 
  Country: None (occurrence: None)
  Receive Date: 20101216
  Receipt Date: 20101203
  Transmission Date: 20110411
  Serious: Yes (Hospitalization, Other)
  Sender: FDA-Public Use
  Company Number: US-ELI_LILLY_AND_COMPANY-US201012001424

PATIENT
  Sex: Female

DRUGS (1)
  1. FORTEO [Suspect]
     Indication: OSTEOPOROSIS
     Dates: end: 20101125

REACTIONS (4)
  - DIZZINESS [None]
  - GAIT DISTURBANCE [None]
  - HEAD DISCOMFORT [None]
  - WALKING DISABILITY [None]
